FAERS Safety Report 10025949 (Version 1)
Quarter: 2014Q1

REPORT INFORMATION
  Report Type: Spontaneous
  Country: FR (occurrence: None)
  Receive Date: 20140314
  Receipt Date: 20140314
  Transmission Date: 20141002
  Serious: Yes (Other)
  Sender: FDA-Public Use
  Company Number: 7273997

PATIENT
  Age: 84 Year
  Sex: Female

DRUGS (9)
  1. LEVOTHYROXINE (LEVOTHYROXINE SODIUM ) (TABLET)  (LEVOTHYROXINE SODIUM) .168226 [Suspect]
     Indication: PRODUCT USED FOR UNKNOWN INDICATION
  2. DEPAMIDE [Concomitant]
  3. BISOPROLOL [Concomitant]
  4. BROMAZEPAM [Concomitant]
  5. FUROSEMIDE (FUROSEMIDE) (FUROSEMIDE) [Concomitant]
  6. PAROXETINE [Concomitant]
  7. ZOPICLONE [Concomitant]
  8. RIVAROXABAN [Concomitant]
  9. HYDROCHLOROTHIAZIDE W/IRBESARTAN (KARVEA HCT) (HYDROCHLOROTHIAZIDE, IRBESARTAN) [Concomitant]

REACTIONS (4)
  - Cardiac disorder [None]
  - Fatigue [None]
  - Blood thyroid stimulating hormone increased [None]
  - Product quality issue [None]
